FAERS Safety Report 8662451 (Version 3)
Quarter: 2012Q4

REPORT INFORMATION
  Report Type: 
  Country: US (occurrence: US)
  Receive Date: 20120712
  Receipt Date: 20121203
  Transmission Date: 20130627
  Serious: Yes (Other)
  Sender: FDA-Public Use
  Company Number: US-PFIZER INC-2012165555

PATIENT
  Age: 70 Year
  Sex: Female
  Weight: 53.06 kg

DRUGS (9)
  1. ZOLOFT [Suspect]
     Indication: DEPRESSION
     Dosage: 50 mg, 1x/day
     Route: 048
     Dates: start: 2000, end: 2009
  2. ZOLOFT [Interacting]
     Dosage: 50 mg, 1x/day
     Route: 048
  3. ZOLOFT [Interacting]
     Dosage: 100 mg, 1x/day
     Route: 048
  4. SERTRALINE HCL [Suspect]
     Indication: DEPRESSION
     Dosage: UNK
  5. CELEXA [Suspect]
     Indication: GENERALIZED ANXIETY DISORDER
     Dosage: 20 mg, UNK
     Route: 048
     Dates: start: 20110330, end: 20110511
  6. CELEXA [Suspect]
     Indication: DEPRESSION
  7. CELEXA [Suspect]
     Indication: ANXIETY
  8. MUCINEX DM [Interacting]
     Dosage: UNK
  9. XANAX [Concomitant]
     Indication: ANXIETY
     Dosage: 0.25 mg, UNK
     Dates: start: 20110330, end: 20110511

REACTIONS (5)
  - Anxiety [Recovered/Resolved]
  - Nervousness [Recovered/Resolved]
  - Discomfort [Unknown]
  - Body height decreased [Not Recovered/Not Resolved]
  - Drug interaction [Unknown]
